FAERS Safety Report 6013756-1 (Version None)
Quarter: 2008Q4

REPORT INFORMATION
  Report Type: 
  Country: None (occurrence: None)
  Receive Date: 20081219
  Receipt Date: 20081210
  Transmission Date: 20090506
  Serious: Yes (Hospitalization)
  Sender: FDA-Public Use
  Company Number: B0549938A

PATIENT
  Age: 23 Month
  Sex: Male

DRUGS (7)
  1. LANVIS [Suspect]
     Indication: ACUTE LYMPHOCYTIC LEUKAEMIA
     Dosage: 25MG PER DAY
     Route: 048
     Dates: start: 20080423, end: 20080430
  2. LANVIS [Suspect]
     Route: 048
     Dates: start: 20080130, end: 20080219
  3. ETOPOSIDE [Concomitant]
     Indication: ACUTE LYMPHOCYTIC LEUKAEMIA
     Dosage: 70MG PER DAY
     Route: 065
     Dates: start: 20080423, end: 20080430
  4. CYTARABINE [Concomitant]
     Indication: ACUTE LYMPHOCYTIC LEUKAEMIA
     Dosage: 15MG PER DAY
     Route: 065
     Dates: start: 20080423, end: 20080430
  5. METHOTREXATE [Concomitant]
     Indication: ACUTE LYMPHOCYTIC LEUKAEMIA
     Dosage: 8MG PER DAY
     Route: 037
     Dates: start: 20080424, end: 20080424
  6. DEPO-MEDROL [Concomitant]
     Indication: ACUTE LYMPHOCYTIC LEUKAEMIA
     Dosage: 20MG PER DAY
     Route: 037
     Dates: start: 20080424, end: 20080424
  7. CYTARABINE [Concomitant]
     Route: 037
     Dates: start: 20080424, end: 20080424

REACTIONS (11)
  - ASCITES [None]
  - HAEMOGLOBIN DECREASED [None]
  - HEPATIC PAIN [None]
  - HEPATOMEGALY [None]
  - OEDEMA [None]
  - PETECHIAE [None]
  - PLEURAL EFFUSION [None]
  - PROTHROMBIN LEVEL DECREASED [None]
  - THROMBOCYTOPENIA [None]
  - VENOOCCLUSIVE DISEASE [None]
  - WEIGHT INCREASED [None]
